FAERS Safety Report 9330244 (Version 1)
Quarter: 2013Q2

REPORT INFORMATION
  Report Type: Spontaneous
  Country: US (occurrence: US)
  Receive Date: 20130604
  Receipt Date: 20130604
  Transmission Date: 20140414
  Serious: Yes (Other)
  Sender: FDA-Public Use
  Company Number: US-ROCHE-1231832

PATIENT
  Age: 55 Year
  Sex: Male

DRUGS (3)
  1. XELODA [Suspect]
     Indication: COLON CANCER
     Route: 048
     Dates: start: 20121212, end: 20130502
  2. PRILOSEC [Concomitant]
     Route: 048
  3. ASPIRIN [Concomitant]
     Route: 048

REACTIONS (1)
  - Liver disorder [Unknown]
